FAERS Safety Report 17034170 (Version 3)
Quarter: 2020Q2

REPORT INFORMATION
  Report Type: Report from Study
  Country: None (occurrence: US)
  Receive Date: 20191114
  Receipt Date: 20200413
  Transmission Date: 20200713
  Serious: Yes (Hospitalization)
  Sender: FDA-Public Use
  Company Number: US-ABBVIE-19K-163-2997500-00

PATIENT
  Sex: Male
  Weight: 113.5 kg

DRUGS (2)
  1. HUMIRA [Suspect]
     Active Substance: ADALIMUMAB
     Indication: RHEUMATOID ARTHRITIS
     Route: 058
  2. HUMIRA [Suspect]
     Active Substance: ADALIMUMAB
     Indication: ANKYLOSING SPONDYLITIS
     Route: 058
     Dates: start: 2018

REACTIONS (19)
  - Medical induction of coma [Recovered/Resolved]
  - Respiratory rate decreased [Unknown]
  - Hypopnoea [Recovered/Resolved]
  - Malaise [Unknown]
  - Blood potassium decreased [Unknown]
  - Respiratory failure [Recovered/Resolved]
  - Infection [Unknown]
  - Stress [Not Recovered/Not Resolved]
  - Arthralgia [Recovering/Resolving]
  - Urinary tract infection [Unknown]
  - Cardiomegaly [Not Recovered/Not Resolved]
  - Pneumonia [Recovered/Resolved]
  - Glaucoma [Unknown]
  - Fatigue [Unknown]
  - Hypertension [Unknown]
  - Back disorder [Unknown]
  - Urinary tract infection [Recovered/Resolved]
  - Back pain [Recovering/Resolving]
  - Therapeutic product effect decreased [Not Recovered/Not Resolved]

NARRATIVE: CASE EVENT DATE: 2019
